FAERS Safety Report 25777430 (Version 1)
Quarter: 2025Q3

REPORT INFORMATION
  Report Type: Spontaneous
  Country: US (occurrence: US)
  Receive Date: 20250909
  Receipt Date: 20250909
  Transmission Date: 20251020
  Serious: Yes (Other)
  Sender: AUROBINDO
  Company Number: US-AUROBINDO-AUR-APL-2025-044964

PATIENT
  Age: 6 Decade
  Sex: Female

DRUGS (7)
  1. SPIRONOLACTONE [Suspect]
     Active Substance: SPIRONOLACTONE
     Indication: Cardiac failure
     Route: 065
  2. CARVEDILOL [Suspect]
     Active Substance: CARVEDILOL
     Indication: Cardiac failure
     Dosage: 3.125 MILLIGRAM, TWO TIMES A DAY
     Route: 065
  3. VALSARTAN [Suspect]
     Active Substance: VALSARTAN
     Indication: Cardiac failure
     Route: 065
  4. VALSARTAN [Suspect]
     Active Substance: VALSARTAN
     Dosage: 103 MILLIGRAM, TWO TIMES A DAY
     Route: 065
  5. SACUBITRIL [Suspect]
     Active Substance: SACUBITRIL
     Indication: Cardiac failure
     Route: 065
  6. SACUBITRIL [Suspect]
     Active Substance: SACUBITRIL
     Dosage: 97 MILLIGRAM, TWO TIMES A DAY
     Route: 065
  7. DAPAGLIFLOZIN [Concomitant]
     Active Substance: DAPAGLIFLOZIN
     Indication: Product used for unknown indication
     Route: 065

REACTIONS (2)
  - Hyperkalaemia [Unknown]
  - Drug ineffective [Unknown]
